FAERS Safety Report 25204538 (Version 2)
Quarter: 2025Q2

REPORT INFORMATION
  Report Type: Spontaneous
  Country: US (occurrence: US)
  Receive Date: 20250416
  Receipt Date: 20250421
  Transmission Date: 20250717
  Serious: No
  Sender: MITSUBISHI TANABE PHARMA
  Company Number: US-MTPC-MTPA2025-0007002

PATIENT

DRUGS (2)
  1. RADICAVA ORS [Suspect]
     Active Substance: EDARAVONE
     Indication: Product used for unknown indication
     Route: 048
  2. RADICAVA ORS [Suspect]
     Active Substance: EDARAVONE
     Indication: Product used for unknown indication
     Route: 048

REACTIONS (3)
  - Respiratory disorder [Unknown]
  - Dyspnoea [Unknown]
  - Rash [Unknown]
